FAERS Safety Report 4277568-1 (Version None)
Quarter: 2004Q1

REPORT INFORMATION
  Report Type: 
  Country: None (occurrence: None)
  Receive Date: 20040121
  Receipt Date: 20040121
  Transmission Date: 20041129
  Serious: Yes (Hospitalization)
  Sender: FDA-Public Use
  Company Number: None

PATIENT
  Age: 63 Year
  Sex: Male
  Weight: 100.8 kg

DRUGS (22)
  1. CEFTRIAXONE [Suspect]
     Indication: PNEUMONIA
     Dosage: SEE IMAGE
  2. INSULIN NPH NOVOLIN HUMAN INJ [Concomitant]
  3. LISINOPRIL [Concomitant]
  4. HYDROCHLOROTHIAZIDE/TRIAMTERENE TAB [Concomitant]
  5. METFORMIN (IMMEDIATE RELEASE) TAB [Concomitant]
  6. RABEPRAZOLE TAB [Concomitant]
  7. INSULIN REGULAR NOVOLIN HUMAN INJ [Concomitant]
  8. LORATADINE TAB [Concomitant]
  9. ISOSORBIDE DINITRATE CAP [Concomitant]
  10. SIMVASTATIN TAB [Concomitant]
  11. NITROGLYCERIN TAB [Concomitant]
  12. NITROGLYCERIN [Concomitant]
  13. ATENOLOL [Concomitant]
  14. SERTRALINE TAB [Concomitant]
  15. PREDNISOLONE SUSP [Concomitant]
  16. KETOROLAC TROMETHAMINE SOLN [Concomitant]
  17. POLYVINVYL ALCOHOL/POVIDONE/SOD CHLORIDE SOLN [Concomitant]
  18. HYDROXYZINE HCL TAB [Concomitant]
  19. LATANOPROST SOLN [Concomitant]
  20. DORZOLAMIDE/TIMOLOL SOLN [Concomitant]
  21. BRIMONIDINE-P SOLN [Concomitant]
  22. METOCLOPRAMIDE [Concomitant]

REACTIONS (2)
  - NEPHRITIS INTERSTITIAL [None]
  - RENAL FAILURE ACUTE [None]
